FAERS Safety Report 5333745-X (Version None)
Quarter: 2007Q2

REPORT INFORMATION
  Report Type: 
  Country: None (occurrence: None)
  Receive Date: 20070524
  Receipt Date: 20070509
  Transmission Date: 20071010
  Serious: Yes (Other)
  Sender: FDA-Public Use
  Company Number: JP-GENENTECH-241764

PATIENT
  Age: 38 Year
  Sex: Female
  Weight: 63 kg

DRUGS (6)
  1. HERCEPTIN [Suspect]
     Indication: BREAST CANCER
     Dosage: 250 MG, QD
     Route: 042
     Dates: start: 20070330, end: 20070330
  2. TAXOL [Concomitant]
     Indication: DRUG USE FOR UNKNOWN INDICATION
  3. RESTAMIN [Concomitant]
     Indication: DRUG USE FOR UNKNOWN INDICATION
  4. KYTRIL [Concomitant]
     Indication: DRUG USE FOR UNKNOWN INDICATION
  5. DEXAMETHASONE SODIUM PHOSPHATE [Concomitant]
     Indication: DRUG USE FOR UNKNOWN INDICATION
  6. RANITIDINE [Concomitant]
     Indication: DRUG USE FOR UNKNOWN INDICATION

REACTIONS (3)
  - DYSPNOEA [None]
  - INFUSION RELATED REACTION [None]
  - PALPITATIONS [None]
